FAERS Safety Report 25122239 (Version 1)
Quarter: 2025Q1

REPORT INFORMATION
  Report Type: Spontaneous
  Country: JP (occurrence: JP)
  Receive Date: 20250326
  Receipt Date: 20250326
  Transmission Date: 20250409
  Serious: Yes (Other)
  Sender: BOEHRINGER INGELHEIM
  Company Number: JP-BoehringerIngelheim-2025-BI-015960

PATIENT
  Age: 85 Year
  Sex: Male

DRUGS (2)
  1. EMPAGLIFLOZIN [Suspect]
     Active Substance: EMPAGLIFLOZIN
     Indication: Diabetes mellitus
  2. INSULIN NOS [Suspect]
     Active Substance: INSULIN NOS
     Indication: Diabetes mellitus

REACTIONS (9)
  - Meningioma [Unknown]
  - Oesophageal stenosis [Recovering/Resolving]
  - Eating disorder [Unknown]
  - Post procedural complication [Unknown]
  - Cognitive disorder [Unknown]
  - Diet refusal [Unknown]
  - Starvation ketoacidosis [Recovering/Resolving]
  - Hiatus hernia [Unknown]
  - Oesophagitis [Unknown]
